FAERS Safety Report 5776919-6 (Version None)
Quarter: 2008Q2

REPORT INFORMATION
  Report Type: 
  Country: None (occurrence: None)
  Receive Date: 20080618
  Receipt Date: 20080611
  Transmission Date: 20081010
  Serious: Yes (Hospitalization)
  Sender: FDA-Public Use
  Company Number: B0511406A

PATIENT
  Age: 67 Year
  Sex: Male

DRUGS (1)
  1. PAXIL [Suspect]
     Indication: DEPRESSION
     Route: 048

REACTIONS (9)
  - CONFUSIONAL STATE [None]
  - HYPERHIDROSIS [None]
  - MUSCULOSKELETAL STIFFNESS [None]
  - MUTISM [None]
  - MYOCLONUS [None]
  - PYREXIA [None]
  - SEROTONIN SYNDROME [None]
  - STUPOR [None]
  - TREMOR [None]
